FAERS Safety Report 23289910 (Version 1)
Quarter: 2023Q4

REPORT INFORMATION
  Report Type: Spontaneous
  Country: CH (occurrence: CH)
  Receive Date: 20231212
  Receipt Date: 20231212
  Transmission Date: 20240109
  Serious: Yes (Other)
  Sender: FDA-Public Use
  Company Number: None

PATIENT
  Age: 82 Year
  Sex: Male
  Weight: 61 kg

DRUGS (27)
  1. AMARYL [Suspect]
     Active Substance: GLIMEPIRIDE
     Indication: Type 2 diabetes mellitus
     Dosage: 2 MG, 1-1/2-0-0
     Route: 048
     Dates: end: 20231020
  2. AMARYL [Suspect]
     Active Substance: GLIMEPIRIDE
     Dosage: UNK
     Route: 048
     Dates: start: 20231024
  3. METFORMIN HYDROCHLORIDE [Suspect]
     Active Substance: METFORMIN HYDROCHLORIDE
     Dosage: 850 MG, 1.5-0-0-0
     Route: 048
  4. METFORMIN HYDROCHLORIDE [Suspect]
     Active Substance: METFORMIN HYDROCHLORIDE
     Indication: Type 2 diabetes mellitus
     Dosage: UNK
     Route: 048
     Dates: start: 20231024
  5. ATORVASTATIN SPIRIG HC [Concomitant]
     Indication: Product used for unknown indication
     Dosage: 80 MG N/A DOSE EVERY 1 DAY
     Route: 048
  6. HYDROCHLOROTHIAZIDE [Concomitant]
     Active Substance: HYDROCHLOROTHIAZIDE
     Indication: Product used for unknown indication
     Dosage: UNK UNK, QD
     Route: 048
  7. SODIUM CHONDROITIN SULFATE [Concomitant]
     Active Substance: SODIUM CHONDROITIN SULFATE
     Indication: Product used for unknown indication
     Dosage: 400 MG N/A DOSE EVERY 12 HOUR
     Route: 048
     Dates: end: 20231019
  8. DAFALGAN [Concomitant]
     Active Substance: ACETAMINOPHEN
     Indication: Product used for unknown indication
     Dosage: 500 MG AS NECESSARY
     Route: 065
     Dates: start: 20231018
  9. DOMPERIDONE [Concomitant]
     Active Substance: DOMPERIDONE
     Indication: Product used for unknown indication
     Dosage: UNK
     Route: 065
     Dates: start: 20231018, end: 20231023
  10. EZETIMIBE [Concomitant]
     Active Substance: EZETIMIBE
     Indication: Product used for unknown indication
     Dosage: 10 MG N/A DOSE EVERY 1 DAY
     Route: 048
  11. GLUCOSE B. BRAUN [Concomitant]
     Indication: Product used for unknown indication
     Dosage: UNK
     Route: 065
     Dates: start: 20231020, end: 20231021
  12. GYNO-TARDYFERON [Concomitant]
     Indication: Product used for unknown indication
     Dosage: N/A N/A N/A DOSE EVERY 1 DAY
     Route: 048
     Dates: end: 20231019
  13. IMODIUM [Concomitant]
     Active Substance: LOPERAMIDE HYDROCHLORIDE
     Indication: Product used for unknown indication
     Dosage: 2 MG N/A DOSE EVERY N/A N/A
     Route: 065
     Dates: start: 20231018, end: 20231019
  14. KLIMAKTOPLANT [Concomitant]
     Indication: Product used for unknown indication
     Dosage: 2-2-1-0
     Route: 048
     Dates: end: 20231019
  15. LAXIPEG [Concomitant]
     Indication: Product used for unknown indication
     Dosage: 10 G AS NECESSARY
     Route: 065
     Dates: start: 20231018, end: 20231025
  16. LOSARTAN POTASSIUM [Concomitant]
     Active Substance: LOSARTAN POTASSIUM
     Indication: Product used for unknown indication
     Dosage: 50 MG N/A DOSE EVERY 1 DAY
     Route: 048
  17. Magnesium sandoz [Concomitant]
     Indication: Product used for unknown indication
     Dosage: 243 MG N/A DOSE EVERY 1 DAY
     Route: 048
     Dates: end: 20231019
  18. METAMIZOLE [Concomitant]
     Active Substance: METAMIZOLE
     Indication: Product used for unknown indication
     Dosage: AS NECESSARY
     Route: 065
  19. ONDANSETRON [Concomitant]
     Active Substance: ONDANSETRON
     Indication: Product used for unknown indication
     Dosage: 4 MG AS NECESSARY
     Route: 065
     Dates: start: 20231019, end: 20231023
  20. PANTOPRAZOLE SODIUM [Concomitant]
     Active Substance: PANTOPRAZOLE SODIUM
     Indication: Product used for unknown indication
     Dosage: 40 MG N/A DOSE EVERY 1 DAY
     Route: 048
  21. LACTATED RINGERS SOLUTION [Concomitant]
     Active Substance: CALCIUM CHLORIDE\POTASSIUM CHLORIDE\SODIUM CHLORIDE\SODIUM LACTATE
     Indication: Product used for unknown indication
     Dosage: UNK
     Route: 065
     Dates: start: 20231019, end: 20231020
  22. TAMSULOSIN HYDROCHLORIDE [Concomitant]
     Active Substance: TAMSULOSIN HYDROCHLORIDE
     Indication: Product used for unknown indication
     Dosage: 0.4 MG N/A DOSE EVERY 1 DAY
     Route: 048
  23. VALVERDE SCHLAF [Concomitant]
     Indication: Product used for unknown indication
     Dosage: AS NECESSARY
     Route: 065
     Dates: start: 20231018, end: 20231025
  24. VANCOCIN [Concomitant]
     Active Substance: VANCOMYCIN HYDROCHLORIDE
     Indication: Product used for unknown indication
     Dosage: 500 MG N/A DOSE EVERY N/A N/A
     Route: 042
     Dates: start: 20231018, end: 20231024
  25. VANCOMYCIN [Concomitant]
     Active Substance: VANCOMYCIN
     Indication: Product used for unknown indication
     Dosage: 125 MG N/A DOSE EVERY N/A N/A
     Route: 065
     Dates: start: 20231018, end: 20231018
  26. CHOLECALCIFEROL [Concomitant]
     Active Substance: CHOLECALCIFEROL
     Indication: Product used for unknown indication
     Dosage: 4^000 UI/1 ML P.O. 0.6-0-0-0
     Route: 048
     Dates: end: 20231019
  27. XARELTO [Concomitant]
     Active Substance: RIVAROXABAN
     Indication: Product used for unknown indication
     Dosage: 20 MG N/A DOSE EVERY 1 DAY
     Route: 048
     Dates: start: 20230927

REACTIONS (1)
  - Hypoglycaemia [Recovered/Resolved]
